FAERS Safety Report 18221826 (Version 1)
Quarter: 2020Q3

REPORT INFORMATION
  Report Type: Spontaneous
  Country: US (occurrence: US)
  Receive Date: 20200901
  Receipt Date: 20200901
  Transmission Date: 20201103
  Serious: Yes (Hospitalization)
  Sender: FDA-Public Use
  Company Number: None

PATIENT
  Age: 49 Year
  Sex: Female

DRUGS (4)
  1. LUPANETA PACK [Suspect]
     Active Substance: LEUPROLIDE ACETATE\NORETHINDRONE ACETATE
     Indication: UTERINE LEIOMYOMA
     Dosage: ADMINISTER LUPRON IN THE MUSCLE ONCE EVERY 3 MONTHS AND TAKE 1 NORETHINDRONE TABLET BY MOUTH DAILY
     Dates: start: 20200519
  2. NORETHINDRONE. [Suspect]
     Active Substance: NORETHINDRONE
  3. HYDROCO/APAP [Concomitant]
     Active Substance: ACETAMINOPHEN\HYDROCODONE
  4. MEDOX [Concomitant]

REACTIONS (2)
  - Surgery [None]
  - Therapy interrupted [None]

NARRATIVE: CASE EVENT DATE: 20200825
